FAERS Safety Report 20795754 (Version 6)
Quarter: 2023Q1

REPORT INFORMATION
  Report Type: Spontaneous
  Country: US (occurrence: US)
  Receive Date: 20220506
  Receipt Date: 20230206
  Transmission Date: 20230417
  Serious: No
  Sender: FDA-Public Use
  Company Number: US-PFIZER INC-202200578719

PATIENT
  Age: 73 Year
  Sex: Female
  Weight: 56.7 kg

DRUGS (4)
  1. IBRANCE [Suspect]
     Active Substance: PALBOCICLIB
     Indication: Breast cancer female
     Dosage: 125 MG, CYCLIC (1 TABLET ONCE DAILY FOR 21 DAYS, THEN OFF)
     Dates: start: 202204
  2. IBRANCE [Suspect]
     Active Substance: PALBOCICLIB
     Dosage: 100 MG
     Dates: start: 2022
  3. FASLODEX [Concomitant]
     Active Substance: FULVESTRANT
     Indication: Oestrogen therapy
     Dosage: UNK, MONTHLY (UNKNOWN DOSE, 2 SHOTS EVERY 4 WEEKS)
  4. ZOMETA [Concomitant]
     Active Substance: ZOLEDRONIC ACID
     Indication: Bone density increased
     Dosage: UNK, INFUSION ONCE EVERY 3 MONTHS

REACTIONS (13)
  - Headache [Unknown]
  - Nausea [Unknown]
  - Platelet count decreased [Unknown]
  - Full blood count decreased [Unknown]
  - Fatigue [Unknown]
  - Mobility decreased [Unknown]
  - Stress [Unknown]
  - Asthenia [Unknown]
  - Illness [Unknown]
  - Hypersomnia [Unknown]
  - Feeling abnormal [Unknown]
  - Alopecia [Unknown]
  - Intercepted product prescribing error [Unknown]
